FAERS Safety Report 8007194-X (Version None)
Quarter: 2011Q4

REPORT INFORMATION
  Report Type: 
  Country: None (occurrence: None)
  Receive Date: 20111227
  Receipt Date: 20111221
  Transmission Date: 20120403
  Serious: No
  Sender: FDA-Public Use
  Company Number: US-BAYER-2011-122798

PATIENT
  Sex: Female

DRUGS (2)
  1. YAZ [Suspect]
     Dosage: 1 DF, QD
     Dates: start: 20111201
  2. YAZ [Suspect]
     Indication: PRODUCT USED FOR UNKNOWN INDICATION
     Dosage: 1 DF, QD

REACTIONS (2)
  - NO ADVERSE EVENT [None]
  - MENSTRUAL DISORDER [None]
